FAERS Safety Report 5429324-6 (Version None)
Quarter: 2007Q3

REPORT INFORMATION
  Report Type: 
  Country: None (occurrence: None)
  Receive Date: 20070829
  Receipt Date: 20070820
  Transmission Date: 20080115
  Serious: Yes (Death, Hospitalization)
  Sender: FDA-Public Use
  Company Number: GB-JNJFOC-20070602876

PATIENT
  Age: 72 Year
  Sex: Male

DRUGS (9)
  1. REMICADE [Suspect]
     Indication: CROHN'S DISEASE
     Dosage: RECEIVED 3 INFUSIONS TOTAL
     Route: 042
  2. ACE INHIBITOR [Concomitant]
  3. BETA BLOCKER [Concomitant]
  4. SPIRONOLACTONE [Concomitant]
  5. FRUSEMIDE [Concomitant]
  6. ASPIRIN [Concomitant]
  7. CLOPIDOGREL [Concomitant]
  8. STATIN [Concomitant]
  9. STEROIDS [Concomitant]

REACTIONS (8)
  - CEREBROVASCULAR ACCIDENT [None]
  - COLITIS ISCHAEMIC [None]
  - COLITIS ULCERATIVE [None]
  - DIARRHOEA INFECTIOUS [None]
  - ENDOCARDITIS [None]
  - GASTROINTESTINAL CARCINOMA [None]
  - SPLENIC ABSCESS [None]
  - STAPHYLOCOCCAL SEPSIS [None]
